FAERS Safety Report 12696671 (Version 4)
Quarter: 2017Q2

REPORT INFORMATION
  Report Type: Report from Study
  Country: US (occurrence: US)
  Receive Date: 20160830
  Receipt Date: 20170621
  Transmission Date: 20170830
  Serious: No
  Sender: FDA-Public Use
  Company Number: PHEH2016US021698

PATIENT
  Age: 35 Year
  Sex: Male

DRUGS (2)
  1. COSENTYX [Suspect]
     Active Substance: SECUKINUMAB
     Indication: PSORIASIS
     Dosage: 300 MG, UNK
     Route: 065
     Dates: start: 20160601
  2. COSENTYX [Suspect]
     Active Substance: SECUKINUMAB
     Indication: PSORIATIC ARTHROPATHY

REACTIONS (5)
  - Drug effect incomplete [Unknown]
  - Pain in extremity [Unknown]
  - Joint injury [Unknown]
  - Abdominal discomfort [Unknown]
  - Exposure via father [Unknown]

NARRATIVE: CASE EVENT DATE: 20160601
